FAERS Safety Report 9217560 (Version 3)
Quarter: 2013Q3

REPORT INFORMATION
  Report Type: Spontaneous
  Country: SA (occurrence: SA)
  Receive Date: 20130408
  Receipt Date: 20130912
  Transmission Date: 20140515
  Serious: Yes (Life-Threatening)
  Sender: FDA-Public Use
  Company Number: SA-ABBOTT-13P-259-1073824-00

PATIENT
  Age: 27 Week
  Sex: Male

DRUGS (3)
  1. SURVANTA INTRATRACHEAL [Suspect]
     Indication: PRODUCT USED FOR UNKNOWN INDICATION
     Dosage: VIAL
  2. GENTAMICIN [Concomitant]
     Indication: PRODUCT USED FOR UNKNOWN INDICATION
  3. AMPICILLIN [Concomitant]
     Indication: PRODUCT USED FOR UNKNOWN INDICATION

REACTIONS (1)
  - Pulmonary haemorrhage [Unknown]
